FAERS Safety Report 6178191-4 (Version None)
Quarter: 2009Q2

REPORT INFORMATION
  Report Type: 
  Country: None (occurrence: None)
  Receive Date: 20090504
  Receipt Date: 20090423
  Transmission Date: 20091009
  Serious: Yes (Other)
  Sender: FDA-Public Use
  Company Number: US-JNJFOC-20090406104

PATIENT
  Age: 55 Year
  Sex: Female
  Weight: 124.74 kg

DRUGS (4)
  1. TYLENOL W/ CODEINE [Suspect]
     Indication: DRUG USE FOR UNKNOWN INDICATION
  2. EXTRA STRENGTH TYLENOL [Suspect]
     Route: 048
  3. EXTRA STRENGTH TYLENOL [Suspect]
     Indication: PAIN
     Route: 048
  4. ATENOLOL [Concomitant]
     Indication: HEART RATE INCREASED

REACTIONS (1)
  - HALLUCINATION [None]
